FAERS Safety Report 17326584 (Version 1)
Quarter: 2020Q1

REPORT INFORMATION
  Report Type: Spontaneous
  Country: US (occurrence: US)
  Receive Date: 20200127
  Receipt Date: 20200127
  Transmission Date: 20200409
  Serious: Yes (Hospitalization, Other)
  Sender: FDA-Public Use
  Company Number: US-PIRAMAL ENTERPRISES LIMITED-2019-PEL-000125

PATIENT

DRUGS (3)
  1. GABLOFEN [Suspect]
     Active Substance: BACLOFEN
     Dosage: BOLUS DOSE
     Route: 037
  2. GABLOFEN [Suspect]
     Active Substance: BACLOFEN
     Indication: PRODUCT USED FOR UNKNOWN INDICATION
     Dosage: 135 MICROGRAM PER DAY
     Route: 037
  3. GABLOFEN [Suspect]
     Active Substance: BACLOFEN
     Indication: PRODUCT USED FOR UNKNOWN INDICATION
     Dosage: 100 MICROGRAM
     Route: 037

REACTIONS (6)
  - Cerebrospinal fluid leakage [Recovered/Resolved]
  - Device physical property issue [Recovered/Resolved]
  - Muscle spasticity [Recovered/Resolved]
  - Drug ineffective [Unknown]
  - Withdrawal syndrome [Recovered/Resolved]
  - Device leakage [Recovered/Resolved]
